FAERS Safety Report 10247099 (Version 2)
Quarter: 2014Q2

REPORT INFORMATION
  Report Type: Spontaneous
  Country: IT (occurrence: IT)
  Receive Date: 20140619
  Receipt Date: 20140623
  Transmission Date: 20141212
  Serious: Yes (Hospitalization)
  Sender: FDA-Public Use
  Company Number: IT-TEVA-488352ISR

PATIENT
  Age: 80 Year
  Sex: Female

DRUGS (25)
  1. CETIRIZINA TEVA 10 MG [Suspect]
     Dosage: 10 MILLIGRAM DAILY;
     Route: 048
  2. CLEXANE 4000 IU AXA [Suspect]
     Indication: THROMBOSIS PROPHYLAXIS
     Dosage: 4000 IU (INTERNATIONAL UNIT) DAILY;
     Route: 058
     Dates: start: 20140417, end: 20140418
  3. CALCIPARINA [Suspect]
     Indication: DEEP VEIN THROMBOSIS
     Dosage: .6 ML DAILY;
     Route: 058
     Dates: start: 20140513, end: 20140605
  4. TAZOCIN 2 G + 0.250 G/4 ML [Suspect]
     Indication: PNEUMONIA BACTERIAL
     Dosage: 9 GRAM DAILY; POWDER AND SOLVENT FOR SOLUTION FOR INJECTION
     Route: 030
     Dates: start: 20140408, end: 20140428
  5. INVANZ 1 G [Suspect]
     Indication: PNEUMONIA BACTERIAL
     Dosage: 1 GRAM DAILY; CONCENTRATE FOR SOLUTION FOR INTRAVENOUS INFUSION
     Route: 042
  6. VANCOMICINA HIKMA [Suspect]
     Indication: PNEUMONIA BACTERIAL
     Dosage: 2 GRAM DAILY;
     Route: 042
  7. CONTRAMAL 100 MG/ML [Suspect]
     Dosage: 20 GTT DAILY;
     Route: 048
     Dates: start: 20140409, end: 20140427
  8. LEVOFLOXACINA KABI [Suspect]
     Indication: PNEUMONIA BACTERIAL
     Route: 042
     Dates: start: 20140409, end: 20140429
  9. TIKLID 250 MG [Suspect]
     Dosage: 2 DOSAGE FORMS DAILY;
     Route: 048
     Dates: start: 20140409, end: 20140429
  10. ACICLIN 400 MG [Suspect]
     Indication: GENITAL HERPES
     Dosage: 1200 MILLIGRAM DAILY;
     Route: 048
  11. ACETILCISTEINA [Suspect]
     Dosage: 1800 MILLIGRAM DAILY;
     Dates: start: 20140514, end: 20140515
  12. MOVICOL [Suspect]
     Dosage: 2 DOSAGE FORMS DAILY;
     Dates: start: 20140513, end: 20140519
  13. KANRENOL [Suspect]
     Dosage: 1 DOSAGE FORMS DAILY;
     Dates: start: 20140512, end: 20140525
  14. CLENIL [Suspect]
     Route: 055
     Dates: start: 20140412, end: 20140516
  15. ATEM [Suspect]
     Route: 055
     Dates: start: 20140412, end: 20140516
  16. BRONCOVALEAS [Suspect]
     Dosage: 7 GTT DAILY;
     Route: 055
     Dates: start: 20140412, end: 20140516
  17. IOMERON 350 [Suspect]
     Indication: IMAGING PROCEDURE
     Dosage: 30 ML DAILY;
     Route: 042
  18. OMEPRAZOLO [Concomitant]
     Dosage: 40 MILLIGRAM DAILY;
     Route: 048
  19. XAGRID 0.5 MG [Concomitant]
     Indication: MYELOPROLIFERATIVE DISORDER
     Dosage: .5 MILLIGRAM DAILY;
     Route: 048
  20. SEREVENT 25 MCG [Concomitant]
     Indication: ASTHMA
     Dosage: 4 DOSAGE FORMS DAILY;
     Route: 055
  21. AIRCORT [Concomitant]
     Route: 055
  22. FOLINA [Concomitant]
     Route: 048
  23. TAVOR 2.5 MG [Concomitant]
     Indication: INSOMNIA
     Dosage: 2.5 MILLIGRAM DAILY;
     Route: 048
  24. LASIX [Concomitant]
     Dosage: 1 DOSAGE FORMS DAILY;
     Route: 030
  25. ZETA COLEST [Concomitant]
     Route: 048

REACTIONS (4)
  - Drug reaction with eosinophilia and systemic symptoms [Recovering/Resolving]
  - Generalised oedema [Recovering/Resolving]
  - Skin exfoliation [Recovering/Resolving]
  - Haematidrosis [Recovering/Resolving]
